FAERS Safety Report 22334198 (Version 4)
Quarter: 2024Q3

REPORT INFORMATION
  Report Type: Spontaneous
  Country: US (occurrence: US)
  Receive Date: 20230517
  Receipt Date: 20240828
  Transmission Date: 20241016
  Serious: Yes (Hospitalization, Other)
  Sender: PFIZER
  Company Number: US-PFIZER INC-US-GBT-021356

PATIENT
  Age: 37 Year
  Sex: Female
  Weight: 86.18 kg

DRUGS (8)
  1. OXBRYTA [Suspect]
     Active Substance: VOXELOTOR
     Indication: Sickle cell anaemia with crisis
     Dosage: 1500 MG (500MG/3 TABLETS), (AT NIGHT) DAILY
     Route: 048
     Dates: start: 20220823
  2. OXBRYTA [Suspect]
     Active Substance: VOXELOTOR
     Dosage: 500MG, 3 TABLETS ONCE DAILY
     Route: 048
  3. OXBRYTA [Suspect]
     Active Substance: VOXELOTOR
     Dosage: 500MG, 3 TABLETS ONCE DAILY
     Route: 048
  4. FOLIC ACID [Concomitant]
     Active Substance: FOLIC ACID
     Dosage: 2 MG, DAILY
  5. ELIQUIS [Concomitant]
     Active Substance: APIXABAN
     Dosage: UNK
  6. CLONAZEPAM [Concomitant]
     Active Substance: CLONAZEPAM
     Dosage: UNK
  7. MS CONTIN [Concomitant]
     Active Substance: MORPHINE SULFATE
     Dosage: UNK
  8. DILAUDID [Concomitant]
     Active Substance: HYDROMORPHONE HYDROCHLORIDE
     Dosage: UNK

REACTIONS (13)
  - Product dose omission issue [Unknown]
  - Sickle cell anaemia with crisis [Unknown]
  - Haemoglobin decreased [Recovering/Resolving]
  - Haemoglobin increased [Unknown]
  - Wound [Unknown]
  - Wound infection [Unknown]
  - Joint injury [Unknown]
  - Malaise [Unknown]
  - Fatigue [Recovering/Resolving]
  - Skin ulcer [Not Recovered/Not Resolved]
  - Disease recurrence [Not Recovered/Not Resolved]
  - Condition aggravated [Unknown]
  - Aphonia [Not Recovered/Not Resolved]

NARRATIVE: CASE EVENT DATE: 20230501
